FAERS Safety Report 9320156 (Version 1)
Quarter: 2013Q2

REPORT INFORMATION
  Report Type: Spontaneous
  Country: GB (occurrence: GB)
  Receive Date: 20130530
  Receipt Date: 20130530
  Transmission Date: 20140414
  Serious: Yes (Other)
  Sender: FDA-Public Use
  Company Number: GB-PFIZER INC-2013160504

PATIENT
  Age: 77 Year
  Sex: Female

DRUGS (6)
  1. DOXAZOSIN MESILATE [Suspect]
     Dosage: 1 MG, UNK
     Dates: start: 20130406
  2. VALSARTAN [Concomitant]
     Dosage: 160 MG, 1X/DAY
     Route: 048
  3. BENDROFLUMETHIAZIDE [Concomitant]
     Dosage: 2.5 MG, 1X/DAY
     Route: 048
  4. SIMVASTATIN [Concomitant]
     Dosage: 10 MG, 1X/DAY
     Route: 048
  5. DIAZEPAM [Concomitant]
     Dosage: 2 MG, UNK
     Route: 048
     Dates: end: 20130330
  6. EMCOR [Concomitant]
     Dosage: 20 MG, 1X/DAY
     Route: 048

REACTIONS (1)
  - Joint swelling [Unknown]
